FAERS Safety Report 25509729 (Version 5)
Quarter: 2025Q4

REPORT INFORMATION
  Report Type: Report from Study
  Country: EU (occurrence: EU)
  Receive Date: 20250703
  Receipt Date: 20251121
  Transmission Date: 20260117
  Serious: Yes (Life-Threatening)
  Sender: KARYOPHARM THERAPEUTICS
  Company Number: EU-KARYOPHARM-2025KPT100449

PATIENT
  Sex: Male
  Weight: 82 kg

DRUGS (14)
  1. SELINEXOR [Suspect]
     Active Substance: SELINEXOR
     Indication: Plasma cell myeloma
     Dosage: 100 MG 1/WEEK
     Route: 048
     Dates: start: 20250519, end: 20250630
  2. BORTEZOMIB [Suspect]
     Active Substance: BORTEZOMIB
     Indication: Plasma cell myeloma
     Dosage: 1.3 MG/M2 1/WEEK (ONCE PER WEEK FOR 4 WEEKS THEN 1 WEEK PAUSED)
     Route: 058
     Dates: start: 20250519
  3. DEXAMETHASONE [Suspect]
     Active Substance: DEXAMETHASONE
     Indication: Plasma cell myeloma
     Dosage: 20 MG 2/WEEK
     Route: 042
     Dates: start: 20250519
  4. ALLOPURINOL [Concomitant]
     Active Substance: ALLOPURINOL
  5. VERICIGUAT [Concomitant]
     Active Substance: VERICIGUAT
  6. LISINOPRIL AND HYDROCHLOROTHIAZIDE [Concomitant]
     Active Substance: HYDROCHLOROTHIAZIDE\LISINOPRIL
  7. ACYCLOVIR [Concomitant]
     Active Substance: ACYCLOVIR
     Dates: start: 20200708
  8. METAMIZOLE [Concomitant]
     Active Substance: METAMIZOLE
  9. ESOMEPRAZOLE [Concomitant]
     Active Substance: ESOMEPRAZOLE
  10. EDOXABAN [Concomitant]
     Active Substance: EDOXABAN
  11. BISOPROLOL [Concomitant]
     Active Substance: BISOPROLOL
  12. FOSAPREPITANT [Concomitant]
     Active Substance: FOSAPREPITANT
     Dates: start: 20250519
  13. GRANISETRON [Concomitant]
     Active Substance: GRANISETRON
     Dates: start: 20250519
  14. ONDANSETRON [Concomitant]
     Active Substance: ONDANSETRON
     Dates: start: 20250519

REACTIONS (6)
  - Pancytopenia [Not Recovered/Not Resolved]
  - Leukopenia [Not Recovered/Not Resolved]
  - Thrombocytosis [Not Recovered/Not Resolved]
  - Anaemia [Not Recovered/Not Resolved]
  - Diarrhoea [Recovered/Resolved]
  - Fatigue [Unknown]

NARRATIVE: CASE EVENT DATE: 20250601
